FAERS Safety Report 9364968 (Version 1)
Quarter: 2013Q2

REPORT INFORMATION
  Report Type: Spontaneous
  Country: CN (occurrence: CN)
  Receive Date: 20130624
  Receipt Date: 20130624
  Transmission Date: 20140414
  Serious: Yes (Other)
  Sender: FDA-Public Use
  Company Number: CN-BAXTER-2013BAX023839

PATIENT
  Age: 86 Year
  Sex: Female
  Weight: 35 kg

DRUGS (7)
  1. FAT EMULSION INJECTION [Suspect]
     Indication: NUTRITIONAL SUPPLEMENTATION
     Route: 041
     Dates: start: 20120313, end: 20120313
  2. 0.9% SODIUM CHLORIDE INJECTION [Suspect]
     Indication: PRODUCT USED FOR UNKNOWN INDICATION
     Dosage: WITH CEFUROXIME 2.5 GRAMS
     Route: 042
     Dates: start: 20120313
  3. 0.9% SODIUM CHLORIDE INJECTION [Suspect]
     Dosage: WITH CIMETIDINE 0.4 GRAMS
     Route: 042
     Dates: start: 20120313
  4. 5% GLUCOSE INJECTION [Suspect]
     Indication: PRODUCT USED FOR UNKNOWN INDICATION
     Route: 042
     Dates: start: 20120313
  5. CEFUROXIME SODIUM [Suspect]
     Indication: PRODUCT USED FOR UNKNOWN INDICATION
     Route: 042
     Dates: start: 20120313
  6. CIMETIDINE [Suspect]
     Indication: PRODUCT USED FOR UNKNOWN INDICATION
     Route: 065
     Dates: start: 20120313
  7. AMBROXOL HYDROCHLORIDE [Suspect]
     Indication: PRODUCT USED FOR UNKNOWN INDICATION
     Route: 042
     Dates: start: 20120313

REACTIONS (4)
  - Chest discomfort [Recovered/Resolved]
  - Tachypnoea [Recovered/Resolved]
  - Cold sweat [Recovered/Resolved]
  - Chills [Recovered/Resolved]
